FAERS Safety Report 24203783 (Version 1)
Quarter: 2024Q3

REPORT INFORMATION
  Report Type: Spontaneous
  Country: US (occurrence: US)
  Receive Date: 20240813
  Receipt Date: 20240813
  Transmission Date: 20241016
  Serious: Yes (Other)
  Sender: APOLLO PHARMACEUTICALS
  Company Number: US-PROVEPHARM, INC.-2024-APO-000075

PATIENT

DRUGS (1)
  1. PIPERACILLIN AND TAZOBACTAM [Suspect]
     Active Substance: PIPERACILLIN SODIUM\TAZOBACTAM SODIUM
     Indication: Clostridium bacteraemia
     Route: 042

REACTIONS (1)
  - Drug ineffective for unapproved indication [Unknown]
